FAERS Safety Report 20750547 (Version 1)
Quarter: 2022Q2

REPORT INFORMATION
  Report Type: Spontaneous
  Country: CN (occurrence: CN)
  Receive Date: 20220426
  Receipt Date: 20220426
  Transmission Date: 20220721
  Serious: Yes (Other)
  Sender: FDA-Public Use
  Company Number: CN-ELI_LILLY_AND_COMPANY-CN202204008113

PATIENT
  Age: 47 Year
  Sex: Male

DRUGS (8)
  1. GEMCITABINE HYDROCHLORIDE [Suspect]
     Active Substance: GEMCITABINE HYDROCHLORIDE
     Indication: Hepatic cancer
     Dosage: UNK UNK, UNKNOWN
     Route: 065
     Dates: start: 20220125
  2. GEMCITABINE HYDROCHLORIDE [Suspect]
     Active Substance: GEMCITABINE HYDROCHLORIDE
     Dosage: 1400 MG, SINGLE
     Route: 041
     Dates: start: 20220313, end: 20220313
  3. OXALIPLATIN [Suspect]
     Active Substance: OXALIPLATIN
     Indication: Hepatic cancer
     Dosage: UNK UNK, UNKNOWN
     Route: 065
     Dates: start: 20220125
  4. OXALIPLATIN [Suspect]
     Active Substance: OXALIPLATIN
     Dosage: 150 MG, SINGLE
     Route: 041
     Dates: start: 20220313, end: 20220313
  5. LENVATINIB MESYLATE [Suspect]
     Active Substance: LENVATINIB MESYLATE
     Indication: Hepatic cancer
     Dosage: UNK UNK, UNKNOWN
     Route: 065
     Dates: start: 20220125
  6. LENVATINIB MESYLATE [Suspect]
     Active Substance: LENVATINIB MESYLATE
     Dosage: 8 MG, SINGLE
     Route: 048
     Dates: start: 20220313, end: 20220409
  7. SINTILIMAB [Suspect]
     Active Substance: SINTILIMAB
     Indication: Hepatic cancer
     Dosage: UNK UNK, UNKNOWN
     Route: 065
     Dates: start: 20220325
  8. SINTILIMAB [Suspect]
     Active Substance: SINTILIMAB
     Dosage: 200 MG, SINGLE
     Route: 041
     Dates: start: 20220313, end: 20220313

REACTIONS (8)
  - Abdominal discomfort [Recovering/Resolving]
  - Rash pruritic [Recovering/Resolving]
  - Nausea [Recovering/Resolving]
  - Vomiting [Recovering/Resolving]
  - Myelosuppression [Recovering/Resolving]
  - Body temperature decreased [Unknown]
  - Body temperature increased [Unknown]
  - Mental fatigue [Unknown]

NARRATIVE: CASE EVENT DATE: 20220125
